FAERS Safety Report 5351304-X (Version None)
Quarter: 2007Q2

REPORT INFORMATION
  Report Type: 
  Country: None (occurrence: None)
  Receive Date: 20070516
  Receipt Date: 20061229
  Transmission Date: 20071010
  Serious: Yes (Other)
  Sender: FDA-Public Use
  Company Number: 2007000473

PATIENT
  Sex: Female
  Weight: 89.8 kg

DRUGS (1)
  1. DEPO-PROVERA [Suspect]
     Dosage: (SINGLE INJECTION)
     Dates: start: 19930101, end: 19930101

REACTIONS (6)
  - ABDOMINAL DISTENSION [None]
  - HOT FLUSH [None]
  - MENOPAUSAL SYMPTOMS [None]
  - OVARIAN DISORDER [None]
  - SWELLING [None]
  - WEIGHT INCREASED [None]
